FAERS Safety Report 9468113 (Version 2)
Quarter: 2013Q3

REPORT INFORMATION
  Report Type: Spontaneous
  Country: IN (occurrence: IN)
  Receive Date: 20130821
  Receipt Date: 20130821
  Transmission Date: 20140515
  Serious: Yes (Other)
  Sender: FDA-Public Use
  Company Number: PHHY2013IN086172

PATIENT
  Age: 37 Year
  Sex: Male

DRUGS (10)
  1. CLOZAPINE [Suspect]
     Indication: SCHIZOPHRENIA
     Dosage: UNK
     Dates: start: 2005
  2. CLOZAPINE [Suspect]
     Dosage: 450 MG PER DAY
  3. ARIPIPRAZOLE [Concomitant]
     Dosage: 30 MG, QD
  4. QUETIAPINE [Concomitant]
     Dosage: 800 MG, QD
  5. AMISULPRIDE [Concomitant]
     Dosage: 800 MG, QD
  6. HALOPERIDOL [Concomitant]
     Dosage: 20 MG, QD
  7. FLUPHENAZINE DECANOATE [Concomitant]
     Dosage: 100 MG, ONCE A FORTHNIGHT
  8. SODIUM VALPROATE [Concomitant]
     Dosage: UNK UKN, UNK
  9. RISPERIDONE [Concomitant]
     Dosage: UNK UKN, UNK
  10. OLANZAPINE [Concomitant]
     Dosage: UNK UKN, UNK

REACTIONS (5)
  - Psychotic disorder [Recovering/Resolving]
  - Persecutory delusion [Unknown]
  - Self-injurious ideation [Unknown]
  - Neutropenia [Recovered/Resolved]
  - Lower respiratory tract infection [Unknown]
